FAERS Safety Report 24798936 (Version 1)
Quarter: 2025Q1

REPORT INFORMATION
  Report Type: Report from Study
  Country: CN (occurrence: CN)
  Receive Date: 20250102
  Receipt Date: 20250102
  Transmission Date: 20250409
  Serious: Yes (Other)
  Sender: GILEAD
  Company Number: CN-GILEAD-2024-0697920

PATIENT
  Age: 45 Year
  Sex: Female

DRUGS (1)
  1. SACITUZUMAB GOVITECAN-HZIY [Suspect]
     Active Substance: SACITUZUMAB GOVITECAN-HZIY
     Indication: Cervix carcinoma
     Route: 041
     Dates: start: 20241211

REACTIONS (7)
  - Cachexia [Unknown]
  - Anaemia of malignant disease [Unknown]
  - Chronic gastritis [Unknown]
  - Cancer pain [Unknown]
  - White blood cell count decreased [Unknown]
  - Platelet count decreased [Unknown]
  - Product use in unapproved indication [Unknown]

NARRATIVE: CASE EVENT DATE: 20241211
